FAERS Safety Report 16237642 (Version 11)
Quarter: 2021Q1

REPORT INFORMATION
  Report Type: Spontaneous
  Country: US (occurrence: US)
  Receive Date: 20190425
  Receipt Date: 20210325
  Transmission Date: 20210419
  Serious: Yes (Hospitalization, Other)
  Sender: FDA-Public Use
  Company Number: US-HIKMA PHARMACEUTICALS USA INC.-US-H14001-19-02661

PATIENT
  Age: 76 Year
  Sex: Female
  Weight: 60.8 kg

DRUGS (37)
  1. FIRDAPSE [Suspect]
     Active Substance: AMIFAMPRIDINE PHOSPHATE
     Indication: MYASTHENIC SYNDROME
     Route: 048
     Dates: start: 20190308, end: 20190422
  2. FIRDAPSE [Suspect]
     Active Substance: AMIFAMPRIDINE PHOSPHATE
     Dosage: 15 MG IN THE MORNING, 10 MG IN THE AFTERNOON
     Route: 048
     Dates: start: 20190422
  3. GABAPENTIN. [Concomitant]
     Active Substance: GABAPENTIN
     Route: 065
  4. FIRDAPSE [Suspect]
     Active Substance: AMIFAMPRIDINE PHOSPHATE
     Dosage: IN THE EVENING
     Route: 048
     Dates: start: 2019
  5. FLEXERIL [Suspect]
     Active Substance: CYCLOBENZAPRINE HYDROCHLORIDE
     Indication: NECK PAIN
     Dosage: UNKNOWN
     Route: 065
  6. ARMOUR THYROID [Suspect]
     Active Substance: THYROID, PORCINE
     Indication: HYPOTHYROIDISM
     Route: 065
  7. MELATONIN [Concomitant]
     Active Substance: MELATONIN
     Indication: SOMNAMBULISM
     Route: 065
  8. OMEPRAZOLE. [Concomitant]
     Active Substance: OMEPRAZOLE
     Indication: ULCER
     Route: 065
  9. PAXIL [Concomitant]
     Active Substance: PAROXETINE HYDROCHLORIDE
     Indication: PRODUCT USED FOR UNKNOWN INDICATION
     Dosage: UNKNOWN
     Route: 065
  10. XANAX [Concomitant]
     Active Substance: ALPRAZOLAM
     Indication: PRODUCT USED FOR UNKNOWN INDICATION
     Dosage: UNKNOWN
     Route: 065
  11. MIRAPEX [Concomitant]
     Active Substance: PRAMIPEXOLE DIHYDROCHLORIDE
     Indication: PRODUCT USED FOR UNKNOWN INDICATION
     Route: 065
  12. SUCRALFATE. [Concomitant]
     Active Substance: SUCRALFATE
     Indication: ULCER
     Route: 065
  13. PREDNISONE. [Suspect]
     Active Substance: PREDNISONE
     Indication: AUTOIMMUNE DISORDER
     Route: 065
  14. FIRDAPSE [Suspect]
     Active Substance: AMIFAMPRIDINE PHOSPHATE
     Dosage: 10 MG ONCE DAILY AND 15 MG ONCE DAILY
     Route: 048
     Dates: start: 20190422
  15. FIRDAPSE [Suspect]
     Active Substance: AMIFAMPRIDINE PHOSPHATE
     Dosage: IN THE EVENING
     Route: 048
     Dates: start: 2019
  16. PAROXETINE. [Concomitant]
     Active Substance: PAROXETINE
     Indication: PRODUCT USED FOR UNKNOWN INDICATION
     Route: 065
  17. FIRDAPSE [Suspect]
     Active Substance: AMIFAMPRIDINE PHOSPHATE
     Dosage: 20 MG 2X/DAY (MORNING AND AFTERNOON) AND WAS SUPPOSED TO TAKE 1.5 TABLETS (15 MG) IN THE MORNING
     Route: 048
     Dates: start: 2019
  18. FIRDAPSE [Suspect]
     Active Substance: AMIFAMPRIDINE PHOSPHATE
     Dosage: IN THE MORNING
     Route: 048
     Dates: start: 2019
  19. ARMOUR THYROID [Suspect]
     Active Substance: THYROID, PORCINE
     Route: 065
     Dates: start: 20200318
  20. GABAPENTIN. [Concomitant]
     Active Substance: GABAPENTIN
     Indication: RESTLESS LEGS SYNDROME
     Dosage: UNKNOWN
     Route: 065
     Dates: end: 20191218
  21. GABAPENTIN. [Concomitant]
     Active Substance: GABAPENTIN
     Dosage: UNKNOWN
     Route: 065
     Dates: start: 20191218
  22. VESICARE [Concomitant]
     Active Substance: SOLIFENACIN SUCCINATE
     Indication: PRODUCT USED FOR UNKNOWN INDICATION
     Dosage: UNKNOWN
     Route: 065
  23. MIRAPEX [Concomitant]
     Active Substance: PRAMIPEXOLE DIHYDROCHLORIDE
     Route: 065
  24. FIRDAPSE [Suspect]
     Active Substance: AMIFAMPRIDINE PHOSPHATE
     Dosage: IN THE EVENING
     Route: 048
     Dates: start: 2019
  25. IMMUNOGLOBULIN (IMMUNOGLOBULIN HUMAN NORMAL) [Suspect]
     Active Substance: HUMAN IMMUNOGLOBULIN G
     Indication: MIGRAINE
     Dosage: UNKNOWN
     Route: 042
  26. FOLIVANE?F [Concomitant]
     Active Substance: IRON\VITAMINS
     Indication: PRODUCT USED FOR UNKNOWN INDICATION
     Dosage: UNKNOWN
     Route: 065
  27. LOSARTAN. [Concomitant]
     Active Substance: LOSARTAN
     Indication: HYPERTENSION
     Route: 065
  28. LEVOTHYROXINE. [Concomitant]
     Active Substance: LEVOTHYROXINE
     Indication: PRODUCT USED FOR UNKNOWN INDICATION
     Route: 065
  29. LORATADINE. [Concomitant]
     Active Substance: LORATADINE
     Indication: HYPERSENSITIVITY
     Route: 065
  30. PROMETHAZINE [Concomitant]
     Active Substance: PROMETHAZINE HYDROCHLORIDE
     Indication: NAUSEA
     Route: 065
  31. MAGNESIUM [Concomitant]
     Active Substance: MAGNESIUM
     Indication: PRODUCT USED FOR UNKNOWN INDICATION
     Dosage: UNKNOWN
     Route: 065
  32. SOLAZINE [Concomitant]
     Indication: PRODUCT USED FOR UNKNOWN INDICATION
     Dosage: UNKNOWN
     Route: 065
  33. PREDNISONE. [Suspect]
     Active Substance: PREDNISONE
     Indication: CROHN^S DISEASE
     Route: 065
  34. FIRDAPSE [Suspect]
     Active Substance: AMIFAMPRIDINE PHOSPHATE
     Route: 048
  35. FIRDAPSE [Suspect]
     Active Substance: AMIFAMPRIDINE PHOSPHATE
     Dosage: IN THE MORNING
     Route: 048
     Dates: start: 2019
  36. ARMOUR THYROID [Suspect]
     Active Substance: THYROID, PORCINE
     Route: 065
  37. FIORICET [Concomitant]
     Active Substance: ACETAMINOPHEN\BUTALBITAL\CAFFEINE
     Indication: MIGRAINE
     Dosage: 50?300?40 MG
     Route: 065

REACTIONS (41)
  - Restless legs syndrome [Not Recovered/Not Resolved]
  - Muscle twitching [Not Recovered/Not Resolved]
  - Arthralgia [Recovering/Resolving]
  - Wound haemorrhage [Unknown]
  - Condition aggravated [Recovering/Resolving]
  - Blood pressure fluctuation [Unknown]
  - Discomfort [Unknown]
  - Adrenal insufficiency [Unknown]
  - Myalgia [Unknown]
  - Pain in extremity [Not Recovered/Not Resolved]
  - Eye movement disorder [Not Recovered/Not Resolved]
  - Fatigue [Unknown]
  - Dysphonia [Unknown]
  - Hypokinesia [Unknown]
  - Insomnia [Not Recovered/Not Resolved]
  - Osteoarthritis [Unknown]
  - Malaise [Unknown]
  - Neck pain [Not Recovered/Not Resolved]
  - Haemoglobin decreased [Recovering/Resolving]
  - Drug ineffective [Not Recovered/Not Resolved]
  - Scoliosis [Unknown]
  - Dyspnoea [Not Recovered/Not Resolved]
  - Torticollis [Not Recovered/Not Resolved]
  - Diplopia [Recovering/Resolving]
  - Feeling abnormal [Unknown]
  - Chest pain [Recovered/Resolved]
  - Skin atrophy [Unknown]
  - Vision blurred [Recovering/Resolving]
  - Abdominal pain [Unknown]
  - Gastric ulcer haemorrhage [Recovering/Resolving]
  - Wound infection [Unknown]
  - Visual impairment [Recovering/Resolving]
  - Migraine [Not Recovered/Not Resolved]
  - Intentional product use issue [Unknown]
  - Feeling cold [Recovered/Resolved]
  - Hypothyroidism [Unknown]
  - Fall [Not Recovered/Not Resolved]
  - Cellulitis [Recovering/Resolving]
  - Gastrointestinal haemorrhage [Unknown]
  - Hypersomnia [Unknown]
  - Back pain [Unknown]

NARRATIVE: CASE EVENT DATE: 201811
